FAERS Safety Report 21691164 (Version 3)
Quarter: 2022Q4

REPORT INFORMATION
  Report Type: Spontaneous
  Country: CA (occurrence: CA)
  Receive Date: 20221207
  Receipt Date: 20221216
  Transmission Date: 20230113
  Serious: Yes (Other)
  Sender: FDA-Public Use
  Company Number: CA-SA-SAC20221206000187

PATIENT
  Sex: Female

DRUGS (19)
  1. ZOPICLONE [Suspect]
     Active Substance: ZOPICLONE
     Route: 048
  2. AMLODIPINE [Suspect]
     Active Substance: AMLODIPINE BESYLATE
  3. ACETAMINOPHEN [Suspect]
     Active Substance: ACETAMINOPHEN
     Indication: Pain
  4. ACETAMINOPHEN [Suspect]
     Active Substance: ACETAMINOPHEN
     Indication: Pyrexia
  5. ARIPIPRAZOLE [Suspect]
     Active Substance: ARIPIPRAZOLE
  6. VALPROIC ACID [Suspect]
     Active Substance: VALPROIC ACID
  7. ESTRADIOL BENZOATE [Suspect]
     Active Substance: ESTRADIOL BENZOATE
  8. LEVOTHYROXINE SODIUM [Suspect]
     Active Substance: LEVOTHYROXINE SODIUM
  9. CLOTRIMAZOLE [Suspect]
     Active Substance: CLOTRIMAZOLE
  10. CLOZAPINE [Suspect]
     Active Substance: CLOZAPINE
  11. OLANZAPINE [Suspect]
     Active Substance: OLANZAPINE
  12. RANITIDINE HYDROCHLORIDE [Suspect]
     Active Substance: RANITIDINE HYDROCHLORIDE
  13. ALUMINUM HYDROXIDE [Suspect]
     Active Substance: ALUMINUM HYDROXIDE
     Indication: Abdominal discomfort
     Dosage: UNK
  14. CHOLECALCIFEROL [Suspect]
     Active Substance: CHOLECALCIFEROL
  15. CONJUGATED ESTROGENS [Suspect]
     Active Substance: ESTROGENS, CONJUGATED
  16. REXULTI [Suspect]
     Active Substance: BREXPIPRAZOLE
  17. ACETAMINOPHEN [Suspect]
     Active Substance: ACETAMINOPHEN
  18. AMLODIPINE MESYLATE [Suspect]
     Active Substance: AMLODIPINE MESYLATE
  19. FLUMIST QUADRIVALENT [Suspect]
     Active Substance: INFLUENZA A VIRUS A/CALIFORNIA/7/2009 (H1N1) LIVE(ATTENUATED) ANTIGEN\INFLUENZA A VIRUS A/TEXAS/50/2

REACTIONS (5)
  - Drug interaction [Unknown]
  - Drug level increased [Unknown]
  - Electrocardiogram QT prolonged [Unknown]
  - Schizoaffective disorder [Unknown]
  - Product use issue [Unknown]
